FAERS Safety Report 8300775-5 (Version None)
Quarter: 2012Q2

REPORT INFORMATION
  Report Type: 
  Country: None (occurrence: None)
  Receive Date: 20120420
  Receipt Date: 20120417
  Transmission Date: 20120825
  Serious: Yes (Hospitalization, Other)
  Sender: FDA-Public Use
  Company Number: PHHY2011NL89507

PATIENT
  Sex: Male
  Weight: 92 kg

DRUGS (7)
  1. DOSTINEX [Concomitant]
  2. PANTOPRAZOLE [Concomitant]
  3. FOSINOPRIL SODIUM [Concomitant]
     Dosage: 10 MG, UNK
  4. SODIUM POLYSTYRENE SULFONATE [Concomitant]
  5. SANDOSTATIN LAR [Suspect]
     Indication: ACROMEGALY
     Dosage: 20 MG, UNK
     Dates: start: 20100511
  6. SANDOSTATIN LAR [Suspect]
     Dosage: 30 MG, EVERY 4 WEEKS
     Dates: start: 20101001, end: 20111001
  7. ANTIHYPERTENSIVE DRUGS [Concomitant]

REACTIONS (5)
  - PANCREATIC DISORDER [None]
  - LOSS OF CONSCIOUSNESS [None]
  - PANCREATITIS [None]
  - JAUNDICE [None]
  - VOMITING [None]
